FAERS Safety Report 7795654-6 (Version None)
Quarter: 2011Q4

REPORT INFORMATION
  Report Type: 
  Country: None (occurrence: None)
  Receive Date: 20111004
  Receipt Date: 20110926
  Transmission Date: 20120403
  Serious: Yes (Life-Threatening, Other)
  Sender: FDA-Public Use
  Company Number: AU-GLAXOSMITHKLINE-B0743543A

PATIENT
  Sex: Male
  Weight: 100 kg

DRUGS (2)
  1. VENTOLIN DS [Suspect]
     Indication: ASTHMA
     Route: 055
     Dates: start: 20110823
  2. SYMBICORT [Concomitant]
     Indication: ASTHMA
     Route: 065

REACTIONS (4)
  - DRUG INEFFECTIVE [None]
  - PRODUCT QUALITY ISSUE [None]
  - WHEEZING [None]
  - CHEST DISCOMFORT [None]
